FAERS Safety Report 25183697 (Version 1)
Quarter: 2025Q2

REPORT INFORMATION
  Report Type: Spontaneous
  Country: US (occurrence: US)
  Receive Date: 20250410
  Receipt Date: 20250410
  Transmission Date: 20250717
  Serious: Yes (Death, Other)
  Sender: AMERICAN REGENT
  Company Number: US-AMERICAN REGENT INC-2025001334

PATIENT
  Age: 56 Year
  Sex: Male

DRUGS (3)
  1. VENOFER [Suspect]
     Active Substance: IRON SUCROSE
     Indication: Iron deficiency anaemia
     Route: 065
     Dates: start: 20250310, end: 20250310
  2. VENOFER [Suspect]
     Active Substance: IRON SUCROSE
     Route: 065
     Dates: start: 20250312, end: 20250312
  3. VENOFER [Suspect]
     Active Substance: IRON SUCROSE
     Route: 065
     Dates: start: 20250314, end: 20250314

REACTIONS (3)
  - Death [Fatal]
  - Sepsis [Unknown]
  - Off label use [Unknown]

NARRATIVE: CASE EVENT DATE: 20250301
